FAERS Safety Report 16986645 (Version 1)
Quarter: 2019Q4

REPORT INFORMATION
  Report Type: Spontaneous
  Country: US (occurrence: US)
  Receive Date: 20191101
  Receipt Date: 20191101
  Transmission Date: 20200122
  Serious: No
  Sender: FDA-Public Use
  Company Number: US-JAZZ-2019-US-012224

PATIENT
  Sex: Male

DRUGS (10)
  1. SUNOSI [Suspect]
     Active Substance: SOLRIAMFETOL
     Indication: SLEEP APNOEA SYNDROME
     Dosage: 75 MG, QD
     Dates: start: 201908, end: 201908
  2. PRAMIPEXOLE. [Concomitant]
     Active Substance: PRAMIPEXOLE
  3. SUNOSI [Suspect]
     Active Substance: SOLRIAMFETOL
     Indication: SOMNOLENCE
     Dosage: 37.5 MG, QD (HALF TABLET OF 75 MG)
     Dates: start: 20190815, end: 201908
  4. JANUVIA [Concomitant]
     Active Substance: SITAGLIPTIN PHOSPHATE
  5. METFORMIN [Concomitant]
     Active Substance: METFORMIN HYDROCHLORIDE
  6. ZOLOFT [Concomitant]
     Active Substance: SERTRALINE HYDROCHLORIDE
  7. LIPITOR [Concomitant]
     Active Substance: ATORVASTATIN CALCIUM
  8. CYCLOSPORINE. [Concomitant]
     Active Substance: CYCLOSPORINE
     Indication: DERMATITIS
     Dosage: UNK, PRN
  9. SUNOSI [Suspect]
     Active Substance: SOLRIAMFETOL
     Dosage: 150 MG, QD
     Dates: start: 201908, end: 201908
  10. PREDNISONE. [Concomitant]
     Active Substance: PREDNISONE
     Indication: DERMATITIS
     Dosage: UNK, PRN

REACTIONS (1)
  - Drug ineffective [Unknown]

NARRATIVE: CASE EVENT DATE: 201908
